FAERS Safety Report 6915119-0 (Version None)
Quarter: 2010Q3

REPORT INFORMATION
  Report Type: 
  Country: None (occurrence: None)
  Receive Date: 20100805
  Receipt Date: 20100805
  Transmission Date: 20110219
  Serious: No
  Sender: FDA-Public Use
  Company Number: None

PATIENT
  Sex: Female

DRUGS (1)
  1. AMOXICILLIN [Suspect]
     Dosage: 2 CAPSULES DAILY PO
     Route: 048
     Dates: start: 20100122, end: 20100127

REACTIONS (1)
  - CONVULSION [None]
